FAERS Safety Report 6962640-5 (Version None)
Quarter: 2010Q3

REPORT INFORMATION
  Report Type: 
  Country: None (occurrence: None)
  Receive Date: 20100902
  Receipt Date: 20100823
  Transmission Date: 20110219
  Serious: Yes (Other)
  Sender: FDA-Public Use
  Company Number: FR-PFIZER INC-2010099024

PATIENT
  Age: 85 Year
  Sex: Female

DRUGS (5)
  1. FELDENE [Suspect]
     Dosage: 2 MG, SINGLE INJECTION
     Dates: start: 20100805, end: 20100805
  2. FELDENE [Suspect]
     Dosage: UNK
  3. NOVONORM [Concomitant]
     Indication: DIABETES MELLITUS
     Dosage: UNK
     Route: 048
  4. LANTUS [Concomitant]
     Indication: DIABETES MELLITUS
     Dosage: UNK
     Route: 058
  5. PREVISCAN [Concomitant]
     Indication: ANTICOAGULANT THERAPY
     Dosage: 1 DF, 1X/DAY
     Route: 048

REACTIONS (2)
  - HYPERGLYCAEMIA [None]
  - INJECTION SITE HAEMATOMA [None]
